FAERS Safety Report 8430473-9 (Version None)
Quarter: 2012Q2

REPORT INFORMATION
  Report Type: 
  Country: None (occurrence: None)
  Receive Date: 20120612
  Receipt Date: 20120418
  Transmission Date: 20120825
  Serious: Yes (Hospitalization, Other)
  Sender: FDA-Public Use
  Company Number: CN-JNJFOC-20110811997

PATIENT
  Sex: Male
  Weight: 60 kg

DRUGS (3)
  1. SPORANOX [Suspect]
     Route: 048
     Dates: start: 20110823
  2. SPORANOX [Suspect]
     Route: 048
     Dates: start: 20110728, end: 20110821
  3. SPORANOX [Suspect]
     Indication: UPPER RESPIRATORY FUNGAL INFECTION
     Route: 048
     Dates: start: 20110706, end: 20110721

REACTIONS (5)
  - PALPITATIONS [None]
  - DIARRHOEA [None]
  - DIZZINESS [None]
  - HEART RATE INCREASED [None]
  - ABDOMINAL PAIN [None]
